FAERS Safety Report 11918059 (Version 1)
Quarter: 2016Q1

REPORT INFORMATION
  Report Type: Report from Study
  Country: GE (occurrence: GE)
  Receive Date: 20160114
  Receipt Date: 20160114
  Transmission Date: 20160526
  Serious: Yes (Death, Other)
  Sender: FDA-Public Use
  Company Number: GE-GILEAD-2015-0190805

PATIENT
  Age: 53 Year
  Sex: Male

DRUGS (2)
  1. RIBAVIRIN. [Concomitant]
     Active Substance: RIBAVIRIN
     Indication: CHRONIC HEPATITIS C
     Dosage: 200 MG, UNK
     Route: 048
     Dates: start: 20151005, end: 20151203
  2. SOFOSBUVIR [Suspect]
     Active Substance: SOFOSBUVIR
     Indication: CHRONIC HEPATITIS C
     Dosage: 400 MG, UNK
     Route: 048
     Dates: start: 20151005, end: 20151203

REACTIONS (3)
  - Arthralgia [Unknown]
  - Hepatic cirrhosis [Fatal]
  - Asthenia [Unknown]

NARRATIVE: CASE EVENT DATE: 20151020
